FAERS Safety Report 25356254 (Version 1)
Quarter: 2025Q2

REPORT INFORMATION
  Report Type: Spontaneous
  Country: JP (occurrence: JP)
  Receive Date: 20250526
  Receipt Date: 20250526
  Transmission Date: 20250716
  Serious: Yes (Other)
  Sender: MERCK SHARP & DOHME LLC
  Company Number: JP-009507513-2288396

PATIENT
  Age: 76 Year
  Sex: Male

DRUGS (1)
  1. PEMBROLIZUMAB [Suspect]
     Active Substance: PEMBROLIZUMAB
     Indication: Bladder cancer

REACTIONS (6)
  - Renal impairment [Unknown]
  - Stomatitis [Unknown]
  - Therapy partial responder [Unknown]
  - Decreased appetite [Unknown]
  - Taste disorder [Unknown]
  - Rash [Unknown]
